FAERS Safety Report 8587660-9 (Version None)
Quarter: 2012Q3

REPORT INFORMATION
  Report Type: 
  Country: None (occurrence: None)
  Receive Date: 20120812
  Receipt Date: 20120727
  Transmission Date: 20120928
  Serious: No
  Sender: FDA-Public Use
  Company Number: US-009507513-1207USA012384

PATIENT

DRUGS (20)
  1. ZANTAC [Concomitant]
  2. DILTIAZEM HCL [Concomitant]
  3. ARISTOCORT (TRIAMCINOLONE) [Concomitant]
  4. ATIVAN [Concomitant]
  5. MOBIC [Concomitant]
     Dosage: 7.5 MG, BID, PRN
  6. NASACORT AQ [Concomitant]
     Dosage: 2 DF, QD, PRN
  7. COREG [Concomitant]
  8. TOPROL-XL [Suspect]
     Route: 048
  9. PROAIR HFA [Concomitant]
     Dosage: 2 DF, QID, PRN
     Route: 055
  10. ZYRTEC [Concomitant]
  11. RHINOCORT [Suspect]
     Dosage: 4 DF, QD
     Route: 045
  12. PROCARDIA XL [Concomitant]
  13. POTASSIUM (UNSPECIFIED) [Concomitant]
  14. ACIPHEX [Concomitant]
  15. METOPROLOL TARTRATE [Suspect]
     Route: 048
  16. PRINIVIL [Suspect]
     Route: 048
  17. SYMBICORT [Suspect]
     Dosage: 2 DF, BID
     Route: 055
  18. SYMBICORT [Suspect]
     Dosage: 320 MICROGRAM, BID
     Route: 055
  19. COZAAR [Concomitant]
  20. LASIX [Concomitant]

REACTIONS (6)
  - COUGH [None]
  - PAIN [None]
  - OROPHARYNGEAL PAIN [None]
  - ORAL CANDIDIASIS [None]
  - DIARRHOEA [None]
  - SLEEP DISORDER [None]
